FAERS Safety Report 11434031 (Version 1)
Quarter: 2015Q3

REPORT INFORMATION
  Report Type: Spontaneous
  Country: BR (occurrence: BR)
  Receive Date: 20150831
  Receipt Date: 20150831
  Transmission Date: 20151125
  Serious: Yes (Other)
  Sender: FDA-Public Use
  Company Number: BR-ELI_LILLY_AND_COMPANY-BR201508001754

PATIENT
  Sex: Male

DRUGS (3)
  1. FORTEO [Suspect]
     Active Substance: TERIPARATIDE
     Dosage: 20 UG, QD
     Route: 058
     Dates: start: 201508
  2. FORTEO [Suspect]
     Active Substance: TERIPARATIDE
     Indication: OSTEOPOROSIS
     Dosage: 20 UG, QD
     Route: 058
     Dates: start: 20150801, end: 20150816
  3. CALCITRAL [Concomitant]
     Indication: PRODUCT USED FOR UNKNOWN INDICATION
     Dosage: UNK, QD
     Route: 065

REACTIONS (7)
  - Blood pressure increased [Recovered/Resolved]
  - Back pain [Recovered/Resolved]
  - Injection site haemorrhage [Recovered/Resolved]
  - Erythema [Recovered/Resolved]
  - Drug dose omission [Unknown]
  - Pharyngitis [Not Recovered/Not Resolved]
  - Nausea [Unknown]
